FAERS Safety Report 16808577 (Version 1)
Quarter: 2019Q3

REPORT INFORMATION
  Report Type: Spontaneous
  Country: DE (occurrence: DE)
  Receive Date: 20190916
  Receipt Date: 20190916
  Transmission Date: 20191005
  Serious: Yes (Other)
  Sender: FDA-Public Use
  Company Number: DE-HIKMA PHARMACEUTICALS USA INC.-DE-H14001-19-46924

PATIENT
  Age: 4 Month
  Sex: Female
  Weight: 4.2 kg

DRUGS (5)
  1. LAMICTAL [Suspect]
     Active Substance: LAMOTRIGINE
     Indication: EPILEPSY
     Dosage: DAILY DOSE: 100 MG MILLIGRAM(S) EVERY DAY
     Route: 063
     Dates: start: 2016
  2. LEVETIRACETAM. [Suspect]
     Active Substance: LEVETIRACETAM
     Dosage: 2X2000 MD/DAY
     Route: 063
     Dates: start: 2016, end: 2016
  3. LEVETIRACETAM. [Suspect]
     Active Substance: LEVETIRACETAM
     Dosage: 2X2250MG /DAY ()
     Route: 063
     Dates: start: 2016
  4. LAMICTAL [Suspect]
     Active Substance: LAMOTRIGINE
     Dosage: DAILY DOSE: 100 MG MILLIGRAM(S) EVERY DAY
     Route: 064
     Dates: start: 20150826, end: 20160517
  5. LEVETIRACETAM. [Suspect]
     Active Substance: LEVETIRACETAM
     Indication: EPILEPSY
     Route: 064
     Dates: start: 20150826, end: 20160517

REACTIONS (7)
  - Dehydration [Recovered/Resolved]
  - Foetal exposure during pregnancy [Unknown]
  - Urinary tract infection [Unknown]
  - Selective eating disorder [Not Recovered/Not Resolved]
  - Weight gain poor [Unknown]
  - Gastrooesophageal reflux disease [Not Recovered/Not Resolved]
  - Exposure via breast milk [Unknown]

NARRATIVE: CASE EVENT DATE: 20150826
